FAERS Safety Report 21205525 (Version 1)
Quarter: 2022Q3

REPORT INFORMATION
  Report Type: Report from Study
  Country: IT (occurrence: IT)
  Receive Date: 20220812
  Receipt Date: 20220812
  Transmission Date: 20221026
  Serious: Yes (Hospitalization)
  Sender: FDA-Public Use
  Company Number: IT-CELLTRION INC.-2022IT012506

PATIENT

DRUGS (3)
  1. RITUXIMAB [Suspect]
     Active Substance: RITUXIMAB
     Indication: B-cell lymphoma
     Dosage: 1 CYCLICAL; R-DA-EPOCH
     Route: 042
     Dates: start: 20220416, end: 20220421
  2. ETOPOSIDE [Suspect]
     Active Substance: ETOPOSIDE
     Indication: B-cell lymphoma
     Dosage: R-DA-EPOCH
     Route: 042
     Dates: start: 20220416, end: 20220421
  3. PREDNISONE [Concomitant]
     Active Substance: PREDNISONE
     Indication: B-cell lymphoma
     Dosage: R-DA-EPOCH
     Dates: start: 20220416, end: 20220421

REACTIONS (3)
  - Colitis [Recovering/Resolving]
  - Enteritis [Recovering/Resolving]
  - Gastrointestinal wall thickening [Recovering/Resolving]

NARRATIVE: CASE EVENT DATE: 20220509
